FAERS Safety Report 4596770-2 (Version None)
Quarter: 2005Q1

REPORT INFORMATION
  Report Type: 
  Country: None (occurrence: None)
  Receive Date: 20050225
  Receipt Date: 20050214
  Transmission Date: 20050727
  Serious: Yes (Hospitalization)
  Sender: FDA-Public Use
  Company Number: 2005UW02615

PATIENT
  Sex: Male

DRUGS (1)
  1. CRESTOR [Suspect]
     Dates: start: 20041001

REACTIONS (6)
  - CARDIAC ENZYMES INCREASED [None]
  - DISORIENTATION [None]
  - LIVER DISORDER [None]
  - MOBILITY DECREASED [None]
  - RENAL DISORDER [None]
  - VISUAL DISTURBANCE [None]
